FAERS Safety Report 14689120 (Version 3)
Quarter: 2018Q2

REPORT INFORMATION
  Report Type: Spontaneous
  Country: US (occurrence: US)
  Receive Date: 20180328
  Receipt Date: 20180426
  Transmission Date: 20180711
  Serious: Yes (Other)
  Sender: FDA-Public Use
  Company Number: US-GLAXOSMITHKLINE-US2018051300

PATIENT
  Age: 58 Year
  Sex: Female

DRUGS (2)
  1. VALACYCLOVIR [Suspect]
     Active Substance: VALACYCLOVIR HYDROCHLORIDE
     Indication: HERPES ZOSTER
  2. VALTREX [Suspect]
     Active Substance: VALACYCLOVIR HYDROCHLORIDE
     Indication: HERPES ZOSTER
     Dosage: 1 G, BID

REACTIONS (19)
  - Nausea [Unknown]
  - Crying [Unknown]
  - Insomnia [Unknown]
  - Adverse reaction [Unknown]
  - Feeling jittery [Unknown]
  - Discomfort [Unknown]
  - Product quality issue [Unknown]
  - Thinking abnormal [Unknown]
  - Eye pain [Unknown]
  - Eye pruritus [Unknown]
  - Eye swelling [Unknown]
  - Pain [Unknown]
  - Eyelids pruritus [Unknown]
  - Rash [Unknown]
  - Dry eye [Unknown]
  - Herpes zoster [Unknown]
  - Suspected product tampering [Unknown]
  - Vision blurred [Unknown]
  - Ophthalmic herpes zoster [Unknown]

NARRATIVE: CASE EVENT DATE: 20180210
